FAERS Safety Report 6624970-6 (Version None)
Quarter: 2010Q1

REPORT INFORMATION
  Report Type: 
  Country: None (occurrence: None)
  Receive Date: 20100310
  Receipt Date: 20090921
  Transmission Date: 20100710
  Serious: No
  Sender: FDA-Public Use
  Company Number: US-BIOGENIDEC-2009BI030133

PATIENT
  Age: 32 Year
  Sex: Female

DRUGS (7)
  1. AVONEX [Suspect]
     Indication: MULTIPLE SCLEROSIS
     Route: 030
     Dates: start: 20070201, end: 20070301
  2. AVONEX [Suspect]
     Route: 030
     Dates: start: 20090920
  3. SINGULAIR [Concomitant]
     Indication: ASTHMA
     Route: 055
  4. KLONOPIN [Concomitant]
     Indication: ANXIETY
     Route: 048
  5. LAMICTAL CD [Concomitant]
     Indication: BIPOLAR DISORDER
     Route: 048
  6. GEODON [Concomitant]
     Indication: BIPOLAR DISORDER
     Route: 048
  7. PENICILLIN [Concomitant]
     Indication: TOOTH INFECTION
     Route: 048
     Dates: start: 20090901

REACTIONS (6)
  - ANXIETY [None]
  - COORDINATION ABNORMAL [None]
  - DIZZINESS [None]
  - HEADACHE [None]
  - MENTAL IMPAIRMENT [None]
  - NAUSEA [None]
